FAERS Safety Report 23547405 (Version 1)
Quarter: 2024Q1

REPORT INFORMATION
  Report Type: Spontaneous
  Country: US (occurrence: None)
  Receive Date: 20240221
  Receipt Date: 20240221
  Transmission Date: 20240410
  Serious: Yes (Life-Threatening)
  Sender: FDA-Public Use
  Company Number: 2024A040485

PATIENT

DRUGS (1)
  1. SYMBICORT [Suspect]
     Active Substance: BUDESONIDE\FORMOTEROL FUMARATE DIHYDRATE
     Dosage: UNKNOWN UNKNOWN
     Route: 055
     Dates: start: 20200318

REACTIONS (10)
  - Choking [Unknown]
  - Emphysema [Unknown]
  - Productive cough [Unknown]
  - Vomiting [Unknown]
  - Cough [Unknown]
  - Insomnia [Unknown]
  - Product dose omission issue [Unknown]
  - Intentional product use issue [Unknown]
  - Inability to afford medication [Unknown]
  - Product use issue [Unknown]
